FAERS Safety Report 10797534 (Version 1)
Quarter: 2015Q1

REPORT INFORMATION
  Report Type: Spontaneous
  Country: GB (occurrence: GB)
  Receive Date: 20150216
  Receipt Date: 20150216
  Transmission Date: 20150721
  Serious: Yes (Other)
  Sender: FDA-Public Use
  Company Number: GB-MYLANLABS-2015M1004454

PATIENT

DRUGS (2)
  1. NALOXONE [Suspect]
     Active Substance: NALOXONE
     Route: 040
  2. MORPHINE [Suspect]
     Active Substance: MORPHINE
     Dosage: 50 MG, BID
     Route: 065

REACTIONS (2)
  - Drug withdrawal syndrome [Unknown]
  - Pain [Recovered/Resolved]
